FAERS Safety Report 8560884-2 (Version None)
Quarter: 2012Q3

REPORT INFORMATION
  Report Type: 
  Country: None (occurrence: None)
  Receive Date: 20120727
  Receipt Date: 20120727
  Transmission Date: 20120928
  Serious: Yes (Hospitalization)
  Sender: FDA-Public Use
  Company Number: None

PATIENT
  Age: 80 Year
  Sex: Male
  Weight: 81 kg

DRUGS (18)
  1. TEMAZEPAM [Concomitant]
  2. VITAMIN D [Concomitant]
  3. POTASSIUM CHLORIDE [Concomitant]
  4. INDOMETHACIN [Suspect]
     Indication: CORONARY ARTERY DISEASE
     Dosage: 75MG DAILY PO RECENT
     Route: 048
  5. AZILECT [Concomitant]
  6. APAP TAB [Concomitant]
  7. ISOSORBIDE MON XR [Concomitant]
  8. CARBIDOPA AND LEVODOPA [Concomitant]
  9. PRAVACHOL [Concomitant]
  10. HYDROCHLOROTHIAZIDE [Concomitant]
  11. FUROSEMIDE [Concomitant]
  12. TIMOLOL MALEATE [Concomitant]
  13. AMLODIPINE [Concomitant]
  14. LOPRESSOR [Concomitant]
  15. PLAVIX [Suspect]
     Indication: CORONARY ARTERY DISEASE
     Dosage: 75MG DAILY PO RECENT
     Route: 048
  16. ENALAPRIL MALEATE [Concomitant]
  17. FINASTERIDE [Concomitant]
  18. KLOR-CON [Concomitant]

REACTIONS (6)
  - OCCULT BLOOD NEGATIVE [None]
  - CEREBRAL INFARCTION [None]
  - HAEMOGLOBIN DECREASED [None]
  - CONDITION AGGRAVATED [None]
  - DUODENAL ULCER [None]
  - CEREBRAL ISCHAEMIA [None]
